FAERS Safety Report 11760003 (Version 2)
Quarter: 2015Q4

REPORT INFORMATION
  Report Type: Spontaneous
  Country: US (occurrence: US)
  Receive Date: 20151120
  Receipt Date: 20151209
  Transmission Date: 20160304
  Serious: Yes (Other)
  Sender: FDA-Public Use
  Company Number: US-B.I. PHARMACEUTICALS,INC./RIDGEFIELD-2015-BI-65076BP

PATIENT
  Age: 86 Year
  Sex: Male

DRUGS (1)
  1. AGGRENOX [Suspect]
     Active Substance: ASPIRIN\DIPYRIDAMOLE
     Indication: TRANSIENT ISCHAEMIC ATTACK
     Dosage: DOSE PER APPLICATION: 25MG / 200MG;
     Route: 065

REACTIONS (5)
  - Femur fracture [Unknown]
  - Chronic kidney disease [Unknown]
  - Prostate cancer [Unknown]
  - Fall [Unknown]
  - Dementia [Unknown]

NARRATIVE: CASE EVENT DATE: 201412
